FAERS Safety Report 21327577 (Version 1)
Quarter: 2022Q3

REPORT INFORMATION
  Report Type: Spontaneous
  Country: US (occurrence: None)
  Receive Date: 20220913
  Receipt Date: 20220913
  Transmission Date: 20221027
  Serious: Yes (Hospitalization)
  Sender: FDA-Public Use
  Company Number: None

PATIENT
  Sex: Male
  Weight: 61 kg

DRUGS (7)
  1. CYCLOPHOSPHAMIDE [Suspect]
     Active Substance: CYCLOPHOSPHAMIDE
  2. CYTARABINE [Concomitant]
     Active Substance: CYTARABINE
  3. DEXAMETHASONE [Concomitant]
     Active Substance: DEXAMETHASONE
  4. DOXORUBICIN HYDROCHLORIDE [Concomitant]
     Active Substance: DOXORUBICIN HYDROCHLORIDE
  5. METHOTREXATE [Concomitant]
     Active Substance: METHOTREXATE
  6. PEG-L-ASPARAGINASE (PEGASPARGASE,ONCOSPAR) [Concomitant]
  7. VINCRISTINE SULFATE [Concomitant]
     Active Substance: VINCRISTINE SULFATE

REACTIONS (17)
  - Dizziness [None]
  - Haemodynamic instability [None]
  - Hypotension [None]
  - Neutropenia [None]
  - Anaemia [None]
  - Thrombocytopenia [None]
  - Hypervolaemia [None]
  - Sinus disorder [None]
  - Enterovirus test positive [None]
  - Escherichia infection [None]
  - Pneumonia streptococcal [None]
  - Septic shock [None]
  - Troponin decreased [None]
  - Ventricular dysfunction [None]
  - Pancytopenia [None]
  - Unresponsive to stimuli [None]
  - Cardiogenic shock [None]

NARRATIVE: CASE EVENT DATE: 20220903
